FAERS Safety Report 19944368 (Version 1)
Quarter: 2021Q4

REPORT INFORMATION
  Report Type: Spontaneous
  Country: US (occurrence: US)
  Receive Date: 20211010
  Receipt Date: 20211010
  Transmission Date: 20220303
  Serious: Yes (Other)
  Sender: FDA-Public Use
  Company Number: None

PATIENT
  Age: 43 Year
  Sex: Female
  Weight: 114.75 kg

DRUGS (3)
  1. HYDROMORPHONE [Suspect]
     Active Substance: HYDROMORPHONE
     Indication: Pain
     Route: 048
  2. OXYCODONE [Suspect]
     Active Substance: OXYCODONE
  3. HYDROCODONE [Suspect]
     Active Substance: HYDROCODONE

REACTIONS (4)
  - Psychomotor hyperactivity [None]
  - Energy increased [None]
  - Obsessive-compulsive personality disorder [None]
  - Insomnia [None]

NARRATIVE: CASE EVENT DATE: 20211009
